FAERS Safety Report 24844254 (Version 1)
Quarter: 2025Q1

REPORT INFORMATION
  Report Type: Spontaneous
  Country: US (occurrence: US)
  Receive Date: 20250115
  Receipt Date: 20250115
  Transmission Date: 20250408
  Serious: No
  Sender: SANOFI AVENTIS
  Company Number: US-SA-2025SA012575

PATIENT
  Sex: Female

DRUGS (9)
  1. DUPIXENT [Suspect]
     Active Substance: DUPILUMAB
     Indication: Glaucoma
     Dosage: 300 MG, QOW
     Route: 058
  2. BRIMONIDINE [Concomitant]
     Active Substance: BRIMONIDINE TARTRATE
  3. COMBIGAN [Concomitant]
     Active Substance: BRIMONIDINE TARTRATE\TIMOLOL MALEATE
  4. CYCLOBENZAPRINE [Concomitant]
     Active Substance: CYCLOBENZAPRINE
  5. DORZOLAMIDE [Concomitant]
     Active Substance: DORZOLAMIDE
  6. EZETIMIBE [Concomitant]
     Active Substance: EZETIMIBE
  7. LATANOPROST [Concomitant]
     Active Substance: LATANOPROST
  8. PRAVASTATIN [Concomitant]
     Active Substance: PRAVASTATIN
  9. TRAZODONE HCL [Concomitant]
     Active Substance: TRAZODONE HYDROCHLORIDE

REACTIONS (1)
  - Drug ineffective for unapproved indication [Unknown]
